FAERS Safety Report 5170824-4 (Version None)
Quarter: 2006Q4

REPORT INFORMATION
  Report Type: 
  Country: None (occurrence: None)
  Receive Date: 20061205
  Receipt Date: 20061205
  Transmission Date: 20070319
  Serious: Yes (Life-Threatening, Other)
  Sender: FDA-Public Use
  Company Number: None

PATIENT
  Sex: Male
  Weight: 79.3795 kg

DRUGS (1)
  1. LIPITOR [Suspect]
     Indication: BLOOD CHOLESTEROL INCREASED
     Dosage: ONCE A DAY
     Dates: start: 20020101, end: 20061119

REACTIONS (8)
  - BLOOD TESTOSTERONE DECREASED [None]
  - CARDIAC DISORDER [None]
  - FATIGUE [None]
  - GAIT DISTURBANCE [None]
  - LOSS OF CONTROL OF LEGS [None]
  - MOVEMENT DISORDER [None]
  - MUSCLE ATROPHY [None]
  - MUSCLE INJURY [None]
